FAERS Safety Report 5930895-1 (Version None)
Quarter: 2008Q4

REPORT INFORMATION
  Report Type: 
  Country: None (occurrence: None)
  Receive Date: 20081002
  Receipt Date: 20080730
  Transmission Date: 20090506
  Serious: Yes (Life-Threatening, Hospitalization, Disabling, Other)
  Sender: FDA-Public Use
  Company Number: 2008-0016616

PATIENT
  Age: 43 Year
  Sex: Male
  Weight: 67.586 kg

DRUGS (4)
  1. TRUVADA [Suspect]
     Indication: ACQUIRED IMMUNODEFICIENCY SYNDROME
     Dosage: 1 DOSAGE FORMS, 1 IN 1 D, ORAL
     Route: 048
     Dates: start: 20080314, end: 20080327
  2. IV CONTRAST(CONTRAST MEDIA) [Suspect]
     Dosage: 1 IN 1 ONCE, INTRAVENOUS (NOT OTHERWISE SPECIFIED)
     Route: 042
     Dates: start: 20080312, end: 20080312
  3. BACTRIM (BACTRIM /0086101/) [Concomitant]
  4. KALETRA [Concomitant]

REACTIONS (1)
  - RENAL TUBULAR NECROSIS [None]
